FAERS Safety Report 6494204-4 (Version None)
Quarter: 2009Q4

REPORT INFORMATION
  Report Type: 
  Country: None (occurrence: None)
  Receive Date: 20091214
  Receipt Date: 20090121
  Transmission Date: 20100525
  Serious: No
  Sender: FDA-Public Use
  Company Number: US-BRISTOL-MYERS SQUIBB COMPANY-14478291

PATIENT
  Age: 1 Decade
  Sex: Male

DRUGS (2)
  1. ABILIFY [Suspect]
     Indication: SCHIZOPHRENIA
     Dosage: RESTARTED AT LOWER DOSE OF 10MG
  2. ABILIFY [Suspect]
     Indication: ASPERGER'S DISORDER
     Dosage: RESTARTED AT LOWER DOSE OF 10MG

REACTIONS (2)
  - AKATHISIA [None]
  - COGNITIVE DISORDER [None]
